FAERS Safety Report 21068836 (Version 1)
Quarter: 2022Q3

REPORT INFORMATION
  Report Type: Spontaneous
  Country: IT (occurrence: IT)
  Receive Date: 20220712
  Receipt Date: 20220712
  Transmission Date: 20221027
  Serious: Yes (Death, Hospitalization, Other)
  Sender: FDA-Public Use
  Company Number: IT-SA-SAC20220707001970

PATIENT
  Sex: Female

DRUGS (1)
  1. CAPLACIZUMAB [Suspect]
     Active Substance: CAPLACIZUMAB
     Indication: Thrombotic thrombocytopenic purpura
     Dosage: UNK
     Dates: start: 20220630, end: 202207

REACTIONS (1)
  - Critical illness [Fatal]

NARRATIVE: CASE EVENT DATE: 20220101
